FAERS Safety Report 5049523-5 (Version None)
Quarter: 2006Q3

REPORT INFORMATION
  Report Type: 
  Country: None (occurrence: None)
  Receive Date: 20060711
  Receipt Date: 20060711
  Transmission Date: 20061208
  Serious: Yes (Disabling)
  Sender: FDA-Public Use
  Company Number: None

PATIENT
  Sex: Male
  Weight: 116 kg

DRUGS (10)
  1. BETHANECHOL [Suspect]
     Indication: INCONTINENCE
     Dosage: 50 MG TID PRN PO
     Route: 048
     Dates: start: 20060411, end: 20060506
  2. CLONAZEPAM [Suspect]
     Indication: ANXIETY
     Dosage: 0.5 MG TID PO
     Route: 048
     Dates: start: 20060331, end: 20060512
  3. CLONAZEPAM [Suspect]
     Indication: PANIC DISORDER
     Dosage: 0.5 MG TID PO
     Route: 048
     Dates: start: 20060331, end: 20060512
  4. TRAZODONE HCL [Concomitant]
  5. LITHIUM CARBONATE [Concomitant]
  6. PROZAC [Concomitant]
  7. BUPROPION HCL [Concomitant]
  8. NEURONTIN [Concomitant]
  9. VALPROIC [Concomitant]
  10. TEMAZEPAM [Concomitant]

REACTIONS (10)
  - ASTHENIA [None]
  - CLUMSINESS [None]
  - DECREASED APPETITE [None]
  - DYSARTHRIA [None]
  - FALL [None]
  - FEELING DRUNK [None]
  - GAIT DISTURBANCE [None]
  - INCONTINENCE [None]
  - INCORRECT DOSE ADMINISTERED [None]
  - THIRST [None]
